FAERS Safety Report 4614292-7 (Version None)
Quarter: 2005Q1

REPORT INFORMATION
  Report Type: 
  Country: None (occurrence: None)
  Receive Date: 20050315
  Receipt Date: 20050302
  Transmission Date: 20050727
  Serious: Yes (Other)
  Sender: FDA-Public Use
  Company Number: USA050188110

PATIENT
  Age: 69 Year
  Sex: Female

DRUGS (1)
  1. EVISTA [Suspect]
     Indication: OSTEOPOROSIS

REACTIONS (6)
  - HEADACHE [None]
  - MIGRAINE [None]
  - NAUSEA [None]
  - NON-HODGKIN'S LYMPHOMA [None]
  - PHOTOPSIA [None]
  - VOMITING [None]
